FAERS Safety Report 9170354 (Version 2)
Quarter: 2013Q2

REPORT INFORMATION
  Report Type: Spontaneous
  Country: US (occurrence: None)
  Receive Date: 20130312
  Receipt Date: 20130409
  Transmission Date: 20140414
  Serious: Yes (Hospitalization)
  Sender: FDA-Public Use
  Company Number: TCI2013A01183

PATIENT
  Age: 83 Year
  Sex: Female

DRUGS (11)
  1. NESINA [Suspect]
     Indication: DIABETES MELLITUS
     Route: 048
     Dates: start: 20120712, end: 20130212
  2. LIPITOR (ATORVASTATIN CALCIUM) [Concomitant]
  3. RENIVEZE (ENALAPRIL MALEATE) [Concomitant]
  4. ALFAROL (ALFACALCIDOL) [Concomitant]
  5. ARICEPT (DONEPEZIL HYDROCHLORIDE) [Concomitant]
  6. KIKLIN (BIXALOMER) [Concomitant]
  7. LANSOPRAZOLE [Concomitant]
  8. AMLODIN OD(AMLODIPINE BESILATE) [Concomitant]
  9. BONALON (ALENDRONATE SODIUM) [Concomitant]
  10. PRECIPITATED CALCIUM CARBONATE SANWA (CALCIUM CARBONATE) [Concomitant]
  11. BAYASPIRIN (ACETYLSALICYLIC ACID) (ACETYLSALICYLIC ACID) [Concomitant]

REACTIONS (6)
  - Amylase increased [None]
  - Abdominal pain [None]
  - Inflammation [None]
  - Pancreatic cyst [None]
  - Condition aggravated [None]
  - Pancreatitis [None]
